FAERS Safety Report 9320657 (Version 2)
Quarter: 2013Q3

REPORT INFORMATION
  Report Type: Spontaneous
  Country: US (occurrence: US)
  Receive Date: 20130531
  Receipt Date: 20130909
  Transmission Date: 20140515
  Serious: Yes (Hospitalization)
  Sender: FDA-Public Use
  Company Number: US-BIOGENIDEC-2013BI047408

PATIENT
  Age: 42 Year
  Sex: Male

DRUGS (1)
  1. TYSABRI [Suspect]
     Indication: MULTIPLE SCLEROSIS
     Route: 042
     Dates: start: 20110415

REACTIONS (6)
  - Fall [Recovered/Resolved]
  - Upper limb fracture [Unknown]
  - Shoulder operation [Recovered/Resolved]
  - Balance disorder [Recovered/Resolved]
  - Cystitis [Unknown]
  - Urinary tract infection [Recovered/Resolved]
